FAERS Safety Report 5836045-4 (Version None)
Quarter: 2008Q3

REPORT INFORMATION
  Report Type: 
  Country: None (occurrence: None)
  Receive Date: 20080806
  Receipt Date: 20080725
  Transmission Date: 20090109
  Serious: Yes (Hospitalization)
  Sender: FDA-Public Use
  Company Number: FR-PFIZER INC-2008062974

PATIENT

DRUGS (2)
  1. GENOTROPIN [Suspect]
     Indication: HYPOPITUITARISM
  2. GENOTROPIN [Suspect]
     Dosage: DAILY DOSE:1MG

REACTIONS (1)
  - CARDIAC DISORDER [None]
